FAERS Safety Report 25709705 (Version 4)
Quarter: 2025Q3

REPORT INFORMATION
  Report Type: Report from Study
  Country: US (occurrence: US)
  Receive Date: 20250821
  Receipt Date: 20250925
  Transmission Date: 20251021
  Serious: Yes (Other)
  Sender: MALLINCKRODT
  Company Number: US-MALLINCKRODT-MNK202504961

PATIENT
  Age: 51 Year
  Sex: Female

DRUGS (5)
  1. CORTICOTROPIN [Suspect]
     Active Substance: CORTICOTROPIN
     Indication: Pulmonary sarcoidosis
     Route: 058
     Dates: start: 20250810
  2. LYUMJEV [Concomitant]
     Active Substance: INSULIN LISPRO-AABC
  3. LYUMJEV [Concomitant]
     Active Substance: INSULIN LISPRO-AABC
  4. TRESIBA [Concomitant]
     Active Substance: INSULIN DEGLUDEC
  5. TRESIBA [Concomitant]
     Active Substance: INSULIN DEGLUDEC

REACTIONS (5)
  - Choking [Recovered/Resolved]
  - Blood glucose increased [Unknown]
  - Cough [Recovered/Resolved]
  - Hypertension [Recovered/Resolved]
  - Fatigue [Unknown]

NARRATIVE: CASE EVENT DATE: 20250801
